FAERS Safety Report 7454921-6 (Version None)
Quarter: 2011Q2

REPORT INFORMATION
  Report Type: 
  Country: None (occurrence: None)
  Receive Date: 20110503
  Receipt Date: 20110103
  Transmission Date: 20111010
  Serious: Yes (Other)
  Sender: FDA-Public Use
  Company Number: US-BAYER-201026841NA

PATIENT
  Age: 39 Year
  Sex: Female
  Weight: 82 kg

DRUGS (12)
  1. LEVAQUIN [Concomitant]
     Dates: start: 20080606
  2. BUSPIRONE HCL [Concomitant]
     Indication: ANXIETY
     Dates: start: 20080327
  3. YAZ [Suspect]
     Route: 048
     Dates: start: 20080401, end: 20080601
  4. DIETARY SUPPLEMENTS [Concomitant]
     Dosage: 20 DAYS PRIOR TO EVENT
  5. TOPAMAX [Concomitant]
     Indication: MIGRAINE PROPHYLAXIS
     Dates: start: 20080626
  6. APAP W/BUTALBITAL [Concomitant]
     Dates: start: 20080602
  7. DICLOFENAC [Concomitant]
     Dates: start: 20080601
  8. COUMADIN [Concomitant]
  9. DICLOFENAC [Concomitant]
     Dates: start: 20080527
  10. ADVIL LIQUI-GELS [Concomitant]
     Indication: PAIN
  11. VITAMIN B COMPLEX CAP [Concomitant]
  12. DICLOFENAC [Concomitant]
     Dates: start: 20080527

REACTIONS (7)
  - LIMB DISCOMFORT [None]
  - OEDEMA PERIPHERAL [None]
  - PAIN IN EXTREMITY [None]
  - MIGRAINE [None]
  - DEEP VEIN THROMBOSIS [None]
  - HEADACHE [None]
  - VOMITING [None]
